FAERS Safety Report 14500102 (Version 1)
Quarter: 2018Q1

REPORT INFORMATION
  Report Type: Not Available
  Country: US (occurrence: US)
  Receive Date: 20180207
  Receipt Date: 20180207
  Transmission Date: 20180509
  Serious: Yes (Other)
  Sender: FDA-Public Use
  Company Number: US-FOUNDATIONCONSUMERHC-2017-US-014358

PATIENT
  Sex: Female

DRUGS (1)
  1. PLAN B ONE-STEP [Suspect]
     Active Substance: LEVONORGESTREL

REACTIONS (4)
  - Drug ineffective [Unknown]
  - Somatic symptom disorder of pregnancy [Unknown]
  - Unevaluable event [Unknown]
  - Pregnancy after post coital contraception [Unknown]
